FAERS Safety Report 5700126-6 (Version None)
Quarter: 2008Q2

REPORT INFORMATION
  Report Type: 
  Country: None (occurrence: None)
  Receive Date: 20080410
  Receipt Date: 20080327
  Transmission Date: 20081010
  Serious: Yes (Other)
  Sender: FDA-Public Use
  Company Number: US-ELI_LILLY_AND_COMPANY-US200803006136

PATIENT
  Age: 48 Year
  Sex: Female

DRUGS (7)
  1. CYMBALTA [Suspect]
     Indication: DEPRESSION
     Dosage: 30 MG, UNK
     Dates: start: 20070701
  2. CYMBALTA [Suspect]
     Dosage: 60 MG, UNK
  3. CYMBALTA [Suspect]
     Dosage: 90 MG, UNK
  4. CYMBALTA [Suspect]
     Dosage: 120 MG, UNK
  5. CYMBALTA [Suspect]
     Dosage: 90 MG, UNK
  6. CYMBALTA [Suspect]
     Dosage: 30 MG, UNK
  7. COREG [Concomitant]
     Indication: PALPITATIONS
     Dates: start: 20050101

REACTIONS (6)
  - DRUG INEFFECTIVE [None]
  - HYSTERECTOMY [None]
  - INFLUENZA LIKE ILLNESS [None]
  - LETHARGY [None]
  - OOPHORECTOMY [None]
  - PARAESTHESIA [None]
